FAERS Safety Report 22872074 (Version 2)
Quarter: 2023Q4

REPORT INFORMATION
  Report Type: Spontaneous
  Country: US (occurrence: US)
  Receive Date: 20230828
  Receipt Date: 20231003
  Transmission Date: 20240110
  Serious: Yes (Other)
  Sender: FDA-Public Use
  Company Number: US-PFIZER INC-PV202300145638

PATIENT
  Age: 81 Year
  Sex: Male

DRUGS (1)
  1. INLYTA [Suspect]
     Active Substance: AXITINIB
     Dosage: 5 MG

REACTIONS (7)
  - Neuropathy peripheral [Unknown]
  - Condition aggravated [Unknown]
  - Dry throat [Unknown]
  - Fatigue [Unknown]
  - Limb discomfort [Unknown]
  - Limb injury [Unknown]
  - Walking aid user [Unknown]
